FAERS Safety Report 7974014-9 (Version None)
Quarter: 2011Q4

REPORT INFORMATION
  Report Type: 
  Country: None (occurrence: None)
  Receive Date: 20111213
  Receipt Date: 20111208
  Transmission Date: 20120403
  Serious: Yes (Hospitalization)
  Sender: FDA-Public Use
  Company Number: US-GLAXOSMITHKLINE-A0957618A

PATIENT
  Age: 51 Year
  Sex: Female

DRUGS (2)
  1. VOTRIENT [Suspect]
     Indication: BREAST CANCER
     Dosage: 200MG TWICE PER DAY
     Route: 048
  2. TYKERB [Suspect]
     Indication: BREAST CANCER
     Dosage: 1250MG PER DAY
     Route: 065

REACTIONS (2)
  - OFF LABEL USE [None]
  - HOSPITALISATION [None]
